FAERS Safety Report 12187590 (Version 11)
Quarter: 2018Q4

REPORT INFORMATION
  Report Type: Spontaneous
  Country: US (occurrence: US)
  Receive Date: 20160317
  Receipt Date: 20181129
  Transmission Date: 20190204
  Serious: Yes (Hospitalization)
  Sender: FDA-Public Use
  Company Number: US-ASTRAZENECA-2016SE26756

PATIENT
  Age: 24580 Day
  Sex: Female

DRUGS (20)
  1. LORAZEPAM. [Concomitant]
     Active Substance: LORAZEPAM
  2. XGEVA [Concomitant]
     Active Substance: DENOSUMAB
  3. FOLIC ACID. [Concomitant]
     Active Substance: FOLIC ACID
  4. MULTIVITAMIN [Concomitant]
     Active Substance: VITAMINS
  5. PROBIOTIC [Concomitant]
     Active Substance: PROBIOTICS NOS
  6. TAGRISSO [Suspect]
     Active Substance: OSIMERTINIB
     Indication: BONE CANCER
     Route: 048
     Dates: start: 20160218
  7. TAGRISSO [Suspect]
     Active Substance: OSIMERTINIB
     Indication: LUNG CARCINOMA CELL TYPE UNSPECIFIED RECURRENT
     Route: 048
     Dates: start: 20160219
  8. OMEGA 3 [Concomitant]
     Active Substance: OMEGA-3 FATTY ACIDS
  9. SENNA/SENNA PLUS [Concomitant]
  10. LISINOPRIL. [Suspect]
     Active Substance: LISINOPRIL
     Route: 048
  11. VITAMIN C [Concomitant]
     Active Substance: ASCORBIC ACID
  12. TAGRISSO [Suspect]
     Active Substance: OSIMERTINIB
     Indication: BONE CANCER
     Route: 048
     Dates: start: 20160219
  13. LORAZEPAM. [Concomitant]
     Active Substance: LORAZEPAM
  14. ASPIRIN/GOODSENSE ASPIRIN [Concomitant]
  15. ZANTAC [Concomitant]
     Active Substance: RANITIDINE HYDROCHLORIDE
  16. CALCIUM [Concomitant]
     Active Substance: CALCIUM
  17. BACLOFEN. [Concomitant]
     Active Substance: BACLOFEN
  18. TAGRISSO [Suspect]
     Active Substance: OSIMERTINIB
     Indication: LUNG CARCINOMA CELL TYPE UNSPECIFIED RECURRENT
     Route: 048
     Dates: start: 20160218
  19. MIRALAX [Concomitant]
     Active Substance: POLYETHYLENE GLYCOL 3350
  20. MAGNESIUM OXIDE. [Concomitant]
     Active Substance: MAGNESIUM OXIDE

REACTIONS (16)
  - Large intestinal obstruction [Recovered/Resolved]
  - Confusional state [Unknown]
  - Muscle spasms [Not Recovered/Not Resolved]
  - Dry eye [Recovered/Resolved]
  - Malaise [Unknown]
  - Fatigue [Unknown]
  - Rash [Unknown]
  - Product use in unapproved indication [Unknown]
  - Acne [Unknown]
  - Off label use [Unknown]
  - Oropharyngeal pain [Unknown]
  - Blood creatinine increased [Unknown]
  - Product dose omission [Unknown]
  - Dry throat [Unknown]
  - Genital herpes [Unknown]
  - Dry skin [Unknown]

NARRATIVE: CASE EVENT DATE: 20160301
